FAERS Safety Report 9697996 (Version 4)
Quarter: 2013Q4

REPORT INFORMATION
  Report Type: Spontaneous
  Country: JP (occurrence: JP)
  Receive Date: 20131120
  Receipt Date: 20131220
  Transmission Date: 20140711
  Serious: Yes (Death, Life-Threatening, Hospitalization)
  Sender: FDA-Public Use
  Company Number: JP-BAYER-2013-128808

PATIENT
  Age: 70 Year
  Sex: Male
  Weight: 62 kg

DRUGS (17)
  1. STIVARGA [Suspect]
     Indication: COLON CANCER
     Dosage: 160 MG, QD (ON FOR 3 WEEKS AND OFF FOR 1 WEEK)
     Route: 048
     Dates: start: 20130925, end: 20131001
  2. STIVARGA [Suspect]
     Indication: COLON CANCER
     Dosage: 120 MG, QD (ON FOR 3 WEEKS AND OFF FOR 1 WEEK)
     Route: 048
     Dates: start: 20131025, end: 20131106
  3. OLMETEC [Suspect]
     Indication: HYPERTENSION
     Dosage: DAILY DOSE 20 MG
     Route: 048
     Dates: start: 20131003, end: 20131010
  4. OLMETEC [Suspect]
     Indication: HYPERTENSION
     Dosage: DAILY DOSE 40 MG
     Route: 048
     Dates: start: 20131011, end: 20131111
  5. NORVASC [Suspect]
     Indication: HYPERTENSION
     Dosage: DAILY DOSE 5 MG
     Route: 048
     Dates: start: 20131008, end: 20131010
  6. NORVASC [Suspect]
     Indication: HYPERTENSION
     Dosage: DAILY DOSE 10 MG
     Route: 048
     Dates: start: 20131011, end: 20131112
  7. AMARYL [Concomitant]
     Dosage: UNK
     Route: 048
     Dates: end: 20131107
  8. OMEPRAZON [Concomitant]
     Route: 048
  9. ALOSITOL [Concomitant]
     Route: 048
  10. ROHYPNOL [Concomitant]
     Route: 048
  11. ALOSENN [Concomitant]
     Route: 048
  12. MAGLAX [Concomitant]
     Route: 048
  13. GASMOTIN [Concomitant]
     Route: 048
  14. LOXONIN [Concomitant]
     Route: 048
  15. PYDOXAL [Concomitant]
     Route: 048
  16. KALIMATE [Concomitant]
     Route: 048
  17. LYRICA [Concomitant]
     Route: 048

REACTIONS (6)
  - Interstitial lung disease [Fatal]
  - Hypertension [Recovering/Resolving]
  - Malaise [None]
  - Dysphonia [None]
  - Decreased appetite [None]
  - Erythema [None]
